FAERS Safety Report 9169630 (Version 1)
Quarter: 2013Q1

REPORT INFORMATION
  Report Type: Report from Study
  Country: CA (occurrence: CA)
  Receive Date: 20130318
  Receipt Date: 20130318
  Transmission Date: 20140127
  Serious: Yes (Other)
  Sender: FDA-Public Use
  Company Number: CA-009507513-1303CAN007928

PATIENT
  Age: 54 Year
  Sex: Male

DRUGS (4)
  1. VICTRELIS [Suspect]
     Indication: HEPATITIS C
     Dosage: 800 MG, QD
     Route: 048
     Dates: start: 20121009, end: 20121206
  2. VICTRELIS [Suspect]
     Dosage: UNK
  3. RIBAVIRIN [Suspect]
     Indication: HEPATITIS C
     Dosage: 1400MG,QD
     Route: 048
     Dates: start: 20121018
  4. PEGASYS [Suspect]
     Indication: HEPATITIS C
     Dosage: 180 MICROGRAM, QW
     Route: 058
     Dates: start: 20121018

REACTIONS (4)
  - Platelet count decreased [Unknown]
  - Haemoglobin decreased [Unknown]
  - White blood cell count decreased [Not Recovered/Not Resolved]
  - Fatigue [Unknown]
